FAERS Safety Report 5523182-7 (Version None)
Quarter: 2007Q4

REPORT INFORMATION
  Report Type: 
  Country: None (occurrence: None)
  Receive Date: 20071116
  Receipt Date: 20071116
  Transmission Date: 20080405
  Serious: Yes (Hospitalization)
  Sender: FDA-Public Use
  Company Number: None

PATIENT
  Age: 53 Year
  Sex: Female
  Weight: 47.6277 kg

DRUGS (1)
  1. ENDACOF_HC LIQUID LARKEN LABS [Suspect]
     Indication: COUGH
     Dosage: 2.5ML 3X DAILY PO
     Route: 048
     Dates: start: 20070416, end: 20070416

REACTIONS (2)
  - BURNING SENSATION [None]
  - DRUG HYPERSENSITIVITY [None]
